FAERS Safety Report 5590562-3 (Version None)
Quarter: 2007Q4

REPORT INFORMATION
  Report Type: 
  Country: None (occurrence: None)
  Receive Date: 20071214
  Receipt Date: 20071001
  Transmission Date: 20080405
  Serious: Yes (Other)
  Sender: FDA-Public Use
  Company Number: S07-USA-05301-01

PATIENT
  Sex: Female

DRUGS (3)
  1. NAMENDA (MEMANTINE) [Suspect]
     Indication: DEMENTIA
  2. MOBIC [Concomitant]
  3. SANCTURA (TROSPIUM) [Concomitant]

REACTIONS (1)
  - STEVENS-JOHNSON SYNDROME [None]
